FAERS Safety Report 5227249-2 (Version None)
Quarter: 2007Q1

REPORT INFORMATION
  Report Type: 
  Country: None (occurrence: None)
  Receive Date: 20070202
  Receipt Date: 20070124
  Transmission Date: 20070707
  Serious: Yes (Hospitalization)
  Sender: FDA-Public Use
  Company Number: US-AVENTIS-200710579GDDC

PATIENT
  Age: 74 Year
  Sex: Male

DRUGS (11)
  1. TAXOTERE [Suspect]
     Indication: NON-SMALL CELL LUNG CANCER
     Route: 042
     Dates: start: 20070109, end: 20070109
  2. CISPLATIN [Suspect]
     Indication: NON-SMALL CELL LUNG CANCER
     Dates: start: 20070109, end: 20070109
  3. ATENOLOL [Concomitant]
     Dosage: DOSE: UNK
  4. SYNTHROID [Concomitant]
     Dosage: DOSE: UNK
  5. HYDROCHLOROTHIAZIDE [Concomitant]
     Dosage: DOSE: UNK
  6. SPIRIVA [Concomitant]
     Dosage: DOSE: UNK
  7. ASPIRIN [Concomitant]
     Dosage: DOSE: UNK
  8. ALBUTEROL [Concomitant]
     Dosage: DOSE: UNK
  9. PROSCAR [Concomitant]
     Dosage: DOSE: UNK
  10. SIMVASTIN [Concomitant]
     Dosage: DOSE: UNK
  11. VASOTEC                            /00935901/ [Concomitant]
     Dosage: DOSE: UNK

REACTIONS (1)
  - BLOOD CREATININE INCREASED [None]
